FAERS Safety Report 5091653-6 (Version None)
Quarter: 2006Q3

REPORT INFORMATION
  Report Type: 
  Country: None (occurrence: None)
  Receive Date: 20060824
  Receipt Date: 20060818
  Transmission Date: 20061208
  Serious: Yes (Disabling, Other)
  Sender: FDA-Public Use
  Company Number: CAWYE202817JUL06

PATIENT
  Age: 59 Year
  Sex: Male

DRUGS (3)
  1. INDERAL LA [Suspect]
     Indication: HYPERTENSION
     Dosage: 80 MG 1X PER 1 DAY; ORAL
     Route: 048
     Dates: start: 20060331, end: 20060502
  2. ALTACE [Concomitant]
  3. FLONASE [Concomitant]

REACTIONS (3)
  - MYALGIA [None]
  - PAIN IN EXTREMITY [None]
  - THERAPEUTIC RESPONSE UNEXPECTED WITH DRUG SUBSTITUTION [None]
